FAERS Safety Report 13580481 (Version 2)
Quarter: 2017Q4

REPORT INFORMATION
  Report Type: Spontaneous
  Country: US (occurrence: US)
  Receive Date: 20170525
  Receipt Date: 20171010
  Transmission Date: 20180320
  Serious: Yes (Life-Threatening, Hospitalization)
  Sender: FDA-Public Use
  Company Number: US-ASTRAZENECA-2017SE54484

PATIENT
  Age: 80 Year
  Sex: Female

DRUGS (1)
  1. BEVESPI AEROSPHERE [Suspect]
     Active Substance: FORMOTEROL FUMARATE\GLYCOPYRROLATE
     Route: 055
     Dates: start: 201705

REACTIONS (3)
  - Arrhythmia [Unknown]
  - Pneumonia [Unknown]
  - Myocardial infarction [Unknown]
